FAERS Safety Report 8890474 (Version 1)
Quarter: 2012Q4

REPORT INFORMATION
  Report Type: 
  Country: US (occurrence: US)
  Receive Date: 20121107
  Receipt Date: 20121107
  Transmission Date: 20130627
  Serious: Yes (Other)
  Sender: FDA-Public Use
  Company Number: US-BAYER-2012-115757

PATIENT
  Age: 47 Year
  Sex: Female
  Weight: 85.26 kg

DRUGS (15)
  1. BETASERON [Suspect]
     Dosage: 0.25 ml, QOD
     Route: 058
  2. BETASERON [Suspect]
     Dosage: 0.5 ml, QOD
     Route: 058
  3. BETASERON [Suspect]
     Dosage: 0.75 ml, QOD
     Route: 058
  4. BETASERON [Suspect]
     Dosage: 1 ml, QOD
     Route: 058
  5. SINGULAIR [Concomitant]
     Dosage: 10 mg, UNK
  6. TREXIMET [Concomitant]
  7. MONTELUKAST [Concomitant]
     Dosage: 4 mg, UNK
  8. MORPHINE [Concomitant]
     Dosage: 100 mg, UNK
  9. CLONAZEPAM [Concomitant]
     Dosage: 1 mg, UNK
  10. CITALOPRAM [Concomitant]
     Dosage: 10 mg, UNK
  11. OMEPRAZOLE [Concomitant]
     Dosage: 10 mg, UNK
  12. OLOPATADINE [Concomitant]
  13. AVINZA [Concomitant]
     Dosage: 30 mg, UNK
  14. LEVOTHYROXINE [Concomitant]
     Dosage: 100 mcg, UNK
  15. OXYBUTYNIN [Concomitant]

REACTIONS (4)
  - Convulsion [Unknown]
  - Muscle twitching [Unknown]
  - Motor dysfunction [Unknown]
  - Nervousness [Unknown]
